FAERS Safety Report 11755205 (Version 11)
Quarter: 2025Q4

REPORT INFORMATION
  Report Type: Spontaneous
  Country: US (occurrence: US)
  Receive Date: 20151119
  Receipt Date: 20251009
  Transmission Date: 20260118
  Serious: Yes (Other)
  Sender: INCYTE
  Company Number: US-INCYTE CORPORATION-2015IN005247

PATIENT
  Age: 82 Year

DRUGS (17)
  1. JAKAFI [Suspect]
     Active Substance: RUXOLITINIB
     Indication: Polycythaemia vera
     Dosage: 20 MG, BID
  2. JAKAFI [Suspect]
     Active Substance: RUXOLITINIB
     Dosage: 20 MG, QOD
  3. JAKAFI [Suspect]
     Active Substance: RUXOLITINIB
     Dosage: 20 MG, QOD
  4. JAKAFI [Suspect]
     Active Substance: RUXOLITINIB
     Dosage: 20 MILLIGRAM, QD
  5. JAKAFI [Suspect]
     Active Substance: RUXOLITINIB
     Dosage: 20 MG, QD
  6. JAKAFI [Suspect]
     Active Substance: RUXOLITINIB
     Dosage: 20 MILLIGRAM, QOD
  7. JAKAFI [Suspect]
     Active Substance: RUXOLITINIB
     Dosage: 20 MG, QD
  8. JAKAFI [Suspect]
     Active Substance: RUXOLITINIB
     Dosage: 20 MILLIGRAM, QD
  9. JAKAFI [Suspect]
     Active Substance: RUXOLITINIB
     Dosage: 30 MILLIGRAM, QD
  10. VITAMIN B12 [Concomitant]
     Active Substance: CYANOCOBALAMIN
     Indication: Product used for unknown indication
     Dosage: UNK
     Route: 065
  11. ASPIRIN [Concomitant]
     Active Substance: ASPIRIN
     Indication: Product used for unknown indication
     Dosage: UNK
     Route: 065
  12. JANTOVEN [Concomitant]
     Active Substance: WARFARIN SODIUM
     Indication: Product used for unknown indication
     Dosage: UNK
     Route: 065
  13. MECLIZINE MONOHYDROCHLORIDE\NIACIN [Concomitant]
     Active Substance: MECLIZINE MONOHYDROCHLORIDE\NIACIN
     Indication: Product used for unknown indication
     Dosage: UNK
     Route: 065
  14. LUTEIN [Concomitant]
     Active Substance: LUTEIN
     Indication: Product used for unknown indication
     Dosage: UNK
     Route: 065
  15. OCUVITE [ASCORBIC ACID;RETINOL;TOCOPHEROL] [Concomitant]
     Indication: Product used for unknown indication
     Dosage: UNK
     Route: 065
  16. FLUOROURACIL [Concomitant]
     Active Substance: FLUOROURACIL
     Indication: Product used for unknown indication
     Route: 065
  17. ELIQUIS [Concomitant]
     Active Substance: APIXABAN
     Indication: Product used for unknown indication
     Route: 065

REACTIONS (35)
  - Visual impairment [Unknown]
  - Blindness [Unknown]
  - Optic disc oedema [Unknown]
  - Cataract [Unknown]
  - Nephrolithiasis [Unknown]
  - Weight increased [Unknown]
  - Eye oedema [Unknown]
  - Ocular vascular disorder [Unknown]
  - Abdominal distension [Unknown]
  - Gastrooesophageal reflux disease [Unknown]
  - Taste disorder [Unknown]
  - Ear swelling [Unknown]
  - Tinnitus [Not Recovered/Not Resolved]
  - Skin warm [Unknown]
  - Vitamin B12 abnormal [Unknown]
  - Hepatomegaly [Unknown]
  - Splenomegaly [Unknown]
  - Dysphagia [Unknown]
  - Gingival swelling [Unknown]
  - Bone pain [Unknown]
  - Blood disorder [Unknown]
  - White blood cell count increased [Unknown]
  - Haematocrit increased [Unknown]
  - Swelling face [Unknown]
  - Mass [Unknown]
  - Localised infection [Unknown]
  - Hyperphagia [Unknown]
  - Pruritus [Unknown]
  - Full blood count decreased [Unknown]
  - Incorrect dose administered [Unknown]
  - Increased tendency to bruise [Unknown]
  - Headache [Unknown]
  - Abdominal pain upper [Unknown]
  - Contusion [Unknown]
  - Dyspnoea exertional [Unknown]
